FAERS Safety Report 7434797-3 (Version None)
Quarter: 2011Q2

REPORT INFORMATION
  Report Type: 
  Country: None (occurrence: None)
  Receive Date: 20110425
  Receipt Date: 20110414
  Transmission Date: 20111010
  Serious: Yes (Life-Threatening)
  Sender: FDA-Public Use
  Company Number: JP-AMGEN-JPNCT2011021057

PATIENT
  Age: 78 Year
  Sex: Male
  Weight: 62 kg

DRUGS (14)
  1. ADSORBIN [Concomitant]
     Dosage: UNK
     Route: 048
  2. FLUOROURACIL [Concomitant]
     Indication: COLORECTAL CANCER
     Route: 040
     Dates: start: 20100910, end: 20101224
  3. DRENISON [Concomitant]
     Dosage: UNK
     Route: 062
  4. PANITUMUMAB [Suspect]
     Indication: COLORECTAL CANCER
     Dosage: 6 MG/KG, Q2WK
     Route: 041
     Dates: start: 20100910, end: 20101224
  5. FLUOROURACIL [Concomitant]
     Route: 041
     Dates: start: 20100910, end: 20101224
  6. TAIPEMIN [Concomitant]
     Dosage: UNK
     Route: 048
  7. MYSER [Concomitant]
     Dosage: UNK
     Route: 062
  8. CALCIUM LEVOFOLINATE [Concomitant]
     Indication: COLORECTAL CANCER
     Route: 041
     Dates: start: 20100910, end: 20101224
  9. COLONEL [Concomitant]
     Dosage: UNK
     Route: 048
  10. PHELLOBERIN A [Concomitant]
     Dosage: UNK
     Route: 048
  11. SCORPAN [Concomitant]
     Dosage: UNK
     Route: 042
  12. HIRUDOID FORTE [Concomitant]
     Route: 062
  13. ANTIHISTAMINES [Concomitant]
     Indication: PROPHYLAXIS
     Dosage: UNK
     Route: 065
  14. IRINOTECAN HCL [Concomitant]
     Indication: COLORECTAL CANCER
     Route: 041
     Dates: start: 20100910, end: 20101224

REACTIONS (2)
  - DIARRHOEA [None]
  - PARONYCHIA [None]
